FAERS Safety Report 13700799 (Version 1)
Quarter: 2017Q2

REPORT INFORMATION
  Report Type: Spontaneous
  Country: US (occurrence: US)
  Receive Date: 20170628
  Receipt Date: 20170628
  Transmission Date: 20170830
  Serious: Yes (Life-Threatening, Disabling)
  Sender: FDA-Public Use
  Company Number: None

PATIENT
  Age: 53 Year
  Sex: Female
  Weight: 60.75 kg

DRUGS (1)
  1. KLONOPIN [Suspect]
     Active Substance: CLONAZEPAM
     Indication: ANXIETY
     Dosage: ?          OTHER STRENGTH:MG;QUANTITY:1 TABLET(S);?
     Route: 048
     Dates: start: 20070601, end: 20160904

REACTIONS (16)
  - Fatigue [None]
  - Myalgia [None]
  - Drug tolerance [None]
  - Memory impairment [None]
  - Anxiety [None]
  - Feeling cold [None]
  - Crying [None]
  - Eye pain [None]
  - Emotional disorder [None]
  - Vibratory sense increased [None]
  - Abnormal faeces [None]
  - Flat affect [None]
  - Agitation [None]
  - Faeces discoloured [None]
  - Cognitive disorder [None]
  - Toothache [None]

NARRATIVE: CASE EVENT DATE: 20160904
